FAERS Safety Report 5114623-8 (Version None)
Quarter: 2006Q3

REPORT INFORMATION
  Report Type: 
  Country: None (occurrence: None)
  Receive Date: 20060921
  Receipt Date: 20060904
  Transmission Date: 20061208
  Serious: Yes (Other)
  Sender: FDA-Public Use
  Company Number: S06-SWI-03803-01

PATIENT
  Age: 29 Year
  Sex: Female

DRUGS (5)
  1. CITALOPRAM HYDROBROMIDE [Suspect]
     Indication: DEPRESSION
     Dosage: 20 MG QD PO
     Route: 048
     Dates: start: 20030101
  2. DIFFERIN [Suspect]
     Indication: ACNE
     Dates: start: 20040101
  3. VENTOLIN [Suspect]
     Indication: ASTHMA
     Dates: start: 20050314
  4. CLINDAMYCIN HYDROCHLORIDE [Suspect]
     Indication: ACNE
     Dates: start: 20040101
  5. PROCOUTOL (TRICLOSAN) [Suspect]
     Indication: ACNE
     Dates: start: 20040101

REACTIONS (3)
  - ABORTION INDUCED [None]
  - DRUG DOSE OMISSION [None]
  - DRUG EXPOSURE DURING PREGNANCY [None]
